FAERS Safety Report 9370614 (Version 1)
Quarter: 2013Q2

REPORT INFORMATION
  Report Type: Spontaneous
  Country: TN (occurrence: TN)
  Receive Date: 20130626
  Receipt Date: 20130626
  Transmission Date: 20140414
  Serious: Yes (Death)
  Sender: FDA-Public Use
  Company Number: TN-BAXTER-2013BAX024503

PATIENT
  Age: 55 Year
  Sex: Female

DRUGS (6)
  1. ENDOXAN 1G [Suspect]
     Indication: MYCOSIS FUNGOIDES
     Dosage: FOR 5 DAYS EVERY THREE WEEKS
     Route: 065
  2. ENDOXAN 1G [Suspect]
     Indication: T-CELL LYMPHOMA
     Dosage: MINI CHOP REGIMEN
     Route: 065
  3. PREDNISONE [Suspect]
     Indication: MYCOSIS FUNGOIDES
     Dosage: FOR 5 DAYS EVERY THREE WEEKS
     Route: 065
  4. PREDNISONE [Suspect]
     Indication: T-CELL LYMPHOMA
     Dosage: MIN CHOP REGIMEN
     Route: 065
  5. DOXORUBICIN [Suspect]
     Indication: T-CELL LYMPHOMA
     Dosage: MINI CHOP REGIMEN
     Route: 065
  6. VINCRISTINE [Suspect]
     Indication: T-CELL LYMPHOMA
     Dosage: MINI CHOP REGIMEN
     Route: 065

REACTIONS (3)
  - Second primary malignancy [Fatal]
  - T-cell lymphoma [Fatal]
  - Pigmentation disorder [Not Recovered/Not Resolved]
